FAERS Safety Report 7465985-8 (Version None)
Quarter: 2011Q2

REPORT INFORMATION
  Report Type: 
  Country: None (occurrence: None)
  Receive Date: 20110509
  Receipt Date: 20100527
  Transmission Date: 20111010
  Serious: No
  Sender: FDA-Public Use
  Company Number: US-ALEXION-A201000626

PATIENT
  Sex: Female

DRUGS (4)
  1. EAR DROPS [Concomitant]
     Indication: EAR DISORDER
     Dosage: PRN
  2. TYLENOL (CAPLET) [Concomitant]
     Dosage: UNK, PRN
     Route: 048
  3. SOLIRIS [Suspect]
     Indication: PAROXYSMAL NOCTURNAL HAEMOGLOBINURIA
     Dosage: 600 MG, QW
     Route: 042
     Dates: start: 20080820, end: 20080901
  4. SOLIRIS [Suspect]
     Dosage: 900 MG, Q2W
     Dates: start: 20080901

REACTIONS (2)
  - HAEMOLYSIS [None]
  - BLOOD PRODUCT TRANSFUSION DEPENDENT [None]
